FAERS Safety Report 8240778-2 (Version None)
Quarter: 2012Q1

REPORT INFORMATION
  Report Type: 
  Country: None (occurrence: None)
  Receive Date: 20120328
  Receipt Date: 20120322
  Transmission Date: 20120608
  Serious: Yes (Other)
  Sender: FDA-Public Use
  Company Number: PHHY2012VE025526

PATIENT
  Sex: Female

DRUGS (5)
  1. LYRICA [Concomitant]
     Dosage: ONCE A DAY AT NIGHTS
  2. ARTRODAR [Concomitant]
     Dosage: 50 MG,ONCE A DAY
  3. ZOLEDRONOC ACID [Suspect]
     Indication: OSTEOPOROSIS
     Dosage: UNK UKN, UNK
     Route: 042
     Dates: start: 20120113
  4. CALCIO BASE D [Suspect]
     Dosage: UNK UKN, UNK
  5. CATAFLAM [Concomitant]
     Indication: PAIN
     Dosage: UNK UKN, UNK

REACTIONS (4)
  - PYREXIA [None]
  - PHLEBITIS [None]
  - INFLUENZA LIKE ILLNESS [None]
  - CHILLS [None]
